FAERS Safety Report 7280682-X (Version None)
Quarter: 2011Q1

REPORT INFORMATION
  Report Type: 
  Country: None (occurrence: None)
  Receive Date: 20110208
  Receipt Date: 20110204
  Transmission Date: 20110831
  Serious: Yes (Hospitalization, Congenital Anomaly)
  Sender: FDA-Public Use
  Company Number: A0912033A

PATIENT
  Sex: Male

DRUGS (1)
  1. PAXIL [Suspect]
     Route: 064

REACTIONS (11)
  - ATRIOVENTRICULAR BLOCK SECOND DEGREE [None]
  - PLEURAL EFFUSION [None]
  - EBSTEIN'S ANOMALY [None]
  - ATRIAL SEPTAL DEFECT [None]
  - CONGENITAL CARDIOVASCULAR ANOMALY [None]
  - PATENT DUCTUS ARTERIOSUS [None]
  - TRICUSPID VALVE DISEASE [None]
  - ATRIOVENTRICULAR BLOCK COMPLETE [None]
  - CARDIAC FAILURE CHRONIC [None]
  - TRANSPOSITION OF THE GREAT VESSELS [None]
  - DRUG EXPOSURE DURING PREGNANCY [None]
